FAERS Safety Report 12553528 (Version 1)
Quarter: 2016Q3

REPORT INFORMATION
  Report Type: Report from Study
  Country: ES (occurrence: ES)
  Receive Date: 20160713
  Receipt Date: 20160713
  Transmission Date: 20161109
  Serious: Yes (Other)
  Sender: FDA-Public Use
  Company Number: ES-PFIZER INC-2016340426

PATIENT

DRUGS (3)
  1. FENTANYL. [Suspect]
     Active Substance: FENTANYL
     Indication: SEDATION
     Dosage: UNK
  2. PROPOFOL. [Suspect]
     Active Substance: PROPOFOL
     Indication: SEDATION
     Dosage: UNK
     Route: 042
  3. MIDAZOLAM [Suspect]
     Active Substance: MIDAZOLAM\MIDAZOLAM HYDROCHLORIDE
     Indication: SEDATION
     Dosage: UNK

REACTIONS (1)
  - Hypoxia [Unknown]
